FAERS Safety Report 10343910 (Version 10)
Quarter: 2015Q3

REPORT INFORMATION
  Report Type: Report from Study
  Country: DE (occurrence: DE)
  Receive Date: 20140727
  Receipt Date: 20150820
  Transmission Date: 20151125
  Serious: Yes (Death, Hospitalization)
  Sender: FDA-Public Use
  Company Number: PHHO2014DE010208

PATIENT
  Age: 51 Year
  Sex: Female
  Weight: 57 kg

DRUGS (9)
  1. ZYKADIA [Suspect]
     Active Substance: CERITINIB
     Dosage: UNK, DOSE REDUCED
     Route: 048
     Dates: start: 20140722
  2. STEROFUNDIN [Concomitant]
     Indication: PARENTERAL NUTRITION
     Dosage: 1000 ML, UNK
     Route: 065
  3. CLEXANE [Concomitant]
     Active Substance: ENOXAPARIN SODIUM
     Indication: ANGIOPATHY
     Dosage: 0.6 MG, UNK
     Route: 058
     Dates: start: 201405, end: 20150222
  4. PANTOZOL [Concomitant]
     Active Substance: PANTOPRAZOLE SODIUM
     Indication: ANGIOPATHY
     Dosage: 40 MG, UNK
     Route: 048
     Dates: start: 20140811, end: 20150222
  5. ZYKADIA [Suspect]
     Active Substance: CERITINIB
     Dosage: 750 MG,(5X150 MG,DAILY) QD
     Route: 048
     Dates: start: 20141117
  6. ZYKADIA [Suspect]
     Active Substance: CERITINIB
     Indication: NON-SMALL CELL LUNG CANCER
     Dosage: 750 MG, QD
     Route: 048
     Dates: start: 20140714, end: 20140721
  7. LOPERAMIDE [Concomitant]
     Active Substance: LOPERAMIDE
     Indication: PRODUCT USED FOR UNKNOWN INDICATION
     Route: 048
  8. DUROGESIC [Concomitant]
     Active Substance: FENTANYL
     Indication: PAIN
     Dosage: 25 UG, UNK
     Route: 065
  9. ZYKADIA [Suspect]
     Active Substance: CERITINIB
     Dosage: 600 OT, QD
     Route: 048
     Dates: end: 20150223

REACTIONS (17)
  - Non-small cell lung cancer [Fatal]
  - Herpes zoster [Recovered/Resolved]
  - Malignant neoplasm progression [Fatal]
  - Metastatic neoplasm [Fatal]
  - Metastases to spine [Fatal]
  - Hypotension [Recovered/Resolved]
  - Electrocardiogram QT prolonged [Recovered/Resolved]
  - Blister [Unknown]
  - Vomiting [Not Recovered/Not Resolved]
  - Diarrhoea [Unknown]
  - Meningioma [Fatal]
  - Metastases to central nervous system [Fatal]
  - Syncope [Unknown]
  - Muscular weakness [Not Recovered/Not Resolved]
  - Spinal meningioma malignant [Fatal]
  - Nausea [Not Recovered/Not Resolved]
  - Abasia [Not Recovered/Not Resolved]

NARRATIVE: CASE EVENT DATE: 20140714
